FAERS Safety Report 12522376 (Version 2)
Quarter: 2016Q3

REPORT INFORMATION
  Report Type: Spontaneous
  Country: GB (occurrence: GB)
  Receive Date: 20160701
  Receipt Date: 20160708
  Transmission Date: 20161109
  Serious: Yes (Life-Threatening, Hospitalization, Other)
  Sender: FDA-Public Use
  Company Number: GB-ABBVIE-16P-167-1666290-00

PATIENT
  Age: 49 Year
  Sex: Male
  Weight: 72 kg

DRUGS (4)
  1. IBUPROFEN. [Concomitant]
     Active Substance: IBUPROFEN
     Indication: LOWER RESPIRATORY TRACT INFECTION
     Route: 048
     Dates: start: 20160515, end: 20160520
  2. LEMSIP [Concomitant]
     Active Substance: ACETAMINOPHEN\ASCORBIC ACID\PHENYLEPHRINE HYDROCHLORIDE\SODIUM CITRATE
     Indication: PRODUCT USED FOR UNKNOWN INDICATION
  3. PARACETAMOL [Concomitant]
     Active Substance: ACETAMINOPHEN
     Indication: LOWER RESPIRATORY TRACT INFECTION
     Route: 048
     Dates: start: 20160515, end: 20160520
  4. CLARITHROMYCIN. [Suspect]
     Active Substance: CLARITHROMYCIN
     Indication: LOWER RESPIRATORY TRACT INFECTION
     Route: 048
     Dates: start: 20160517, end: 20160520

REACTIONS (8)
  - Acute psychosis [Recovering/Resolving]
  - Panic reaction [Recovering/Resolving]
  - Hallucination [Recovering/Resolving]
  - Intentional self-injury [Recovering/Resolving]
  - Derealisation [Recovering/Resolving]
  - Abnormal dreams [Recovering/Resolving]
  - Confusional state [Recovering/Resolving]
  - Suicidal ideation [Recovering/Resolving]

NARRATIVE: CASE EVENT DATE: 20160518
